FAERS Safety Report 10281514 (Version 3)
Quarter: 2014Q3

REPORT INFORMATION
  Report Type: Spontaneous
  Country: US (occurrence: US)
  Receive Date: 20140707
  Receipt Date: 20140820
  Transmission Date: 20150326
  Serious: Yes (Hospitalization)
  Sender: FDA-Public Use
  Company Number: US-AMGEN-USASP2014033149

PATIENT
  Age: 49 Year
  Sex: Female

DRUGS (1)
  1. ENBREL [Suspect]
     Active Substance: ETANERCEPT
     Indication: RHEUMATOID ARTHRITIS
     Dosage: 9.95 MG, QWK
     Route: 065
     Dates: start: 20140201, end: 201404

REACTIONS (2)
  - Sepsis [Recovered/Resolved]
  - Pneumonia streptococcal [Recovered/Resolved]
